FAERS Safety Report 7359705-5 (Version None)
Quarter: 2011Q1

REPORT INFORMATION
  Report Type: 
  Country: None (occurrence: None)
  Receive Date: 20110317
  Receipt Date: 20100726
  Transmission Date: 20110831
  Serious: No
  Sender: FDA-Public Use
  Company Number: US-PFIZER INC-2010093358

PATIENT
  Sex: Male

DRUGS (4)
  1. AVAPRO [Suspect]
     Dosage: UNK
  2. NORVASC [Suspect]
     Dosage: 40 MG, UNK
     Dates: start: 20100101
  3. NORVASC [Suspect]
     Dosage: 20 MG, UNK
  4. NORVASC [Suspect]
     Dosage: 10 MG, UNK

REACTIONS (2)
  - OEDEMA PERIPHERAL [None]
  - HEADACHE [None]
